FAERS Safety Report 6497486-8 (Version None)
Quarter: 2009Q4

REPORT INFORMATION
  Report Type: 
  Country: None (occurrence: None)
  Receive Date: 20091215
  Receipt Date: 20091202
  Transmission Date: 20100525
  Serious: Yes (Hospitalization)
  Sender: FDA-Public Use
  Company Number: US-ELI_LILLY_AND_COMPANY-US200912000818

PATIENT

DRUGS (16)
  1. FORTEO [Suspect]
     Dosage: 20 UG, DAILY (1/D)
     Dates: start: 20060101, end: 20060101
  2. FORTEO [Suspect]
     Dosage: 20 UG, DAILY (1/D)
     Dates: start: 20081201
  3. ADVAIR DISKUS 100/50 [Concomitant]
  4. METOPROLOL [Concomitant]
  5. TRAMADOL HCL [Concomitant]
  6. NASONEX [Concomitant]
  7. CLARITIN-D [Concomitant]
  8. PROVENTIL /00139501/ [Concomitant]
  9. CALTRATE [Concomitant]
  10. FISH OIL [Concomitant]
  11. DITROPAN [Concomitant]
  12. MOBIC [Concomitant]
  13. TYLENOL (CAPLET) [Concomitant]
  14. TYLENOL (CAPLET) [Concomitant]
  15. MULTI-VITAMIN [Concomitant]
  16. VITAMIN D [Concomitant]

REACTIONS (5)
  - FEELING ABNORMAL [None]
  - LUNG DISORDER [None]
  - LUNG NEOPLASM MALIGNANT [None]
  - MUSCULOSKELETAL STIFFNESS [None]
  - PAIN IN EXTREMITY [None]
